FAERS Safety Report 5681029-2 (Version None)
Quarter: 2008Q1

REPORT INFORMATION
  Report Type: 
  Country: None (occurrence: None)
  Receive Date: 20080325
  Receipt Date: 20080314
  Transmission Date: 20080703
  Serious: Yes (Other)
  Sender: FDA-Public Use
  Company Number: 2008SP005398

PATIENT
  Age: 76 Year
  Sex: Female
  Weight: 76.6579 kg

DRUGS (12)
  1. MIRALAX [Suspect]
     Indication: DRUG USE FOR UNKNOWN INDICATION
     Dosage: PO
     Route: 048
  2. PROCRIT [Suspect]
     Indication: ANAEMIA
     Dosage: QW; SC
     Route: 058
     Dates: start: 20050101
  3. PROCRIT [Suspect]
     Indication: MYELODYSPLASTIC SYNDROME
     Dosage: QW; SC
     Route: 058
     Dates: start: 20050101
  4. ACETAMINOPHEN W/CODEINE (CON.) [Concomitant]
  5. VALIUM (CON.) [Concomitant]
  6. ZOLOFT (CON.) [Concomitant]
  7. ASPIRIN (CON.) [Concomitant]
  8. NEXIUM (CON.) [Concomitant]
  9. FISH OIL (CON.) [Concomitant]
  10. POTASSIUM (CON.) [Concomitant]
  11. B-12 (CON.) [Concomitant]
  12. MS CONTIN (CON.) [Concomitant]

REACTIONS (4)
  - BLOOD ELECTROLYTES DECREASED [None]
  - HAEMOGLOBIN DECREASED [None]
  - HEART RATE IRREGULAR [None]
  - WRONG TECHNIQUE IN DRUG USAGE PROCESS [None]
